FAERS Safety Report 25653917 (Version 1)
Quarter: 2025Q3

REPORT INFORMATION
  Report Type: Spontaneous
  Country: TR (occurrence: TR)
  Receive Date: 20250807
  Receipt Date: 20250807
  Transmission Date: 20251021
  Serious: Yes (Other)
  Sender: GRANULES PHARMACEUTICALS INC
  Company Number: TR-GRANULES-TR-2025GRALIT00413

PATIENT
  Age: 17 Year

DRUGS (3)
  1. IBUPROFEN [Suspect]
     Active Substance: IBUPROFEN
     Indication: Product used for unknown indication
     Route: 065
  2. METAMIZOLE [Suspect]
     Active Substance: METAMIZOLE
     Indication: Product used for unknown indication
     Route: 065
  3. FLURBIPROFEN [Suspect]
     Active Substance: FLURBIPROFEN
     Indication: Product used for unknown indication
     Route: 065

REACTIONS (3)
  - Angioedema [Unknown]
  - Cross sensitivity reaction [Unknown]
  - Urticaria [Unknown]
